FAERS Safety Report 14282178 (Version 1)
Quarter: 2017Q4

REPORT INFORMATION
  Report Type: Report from Study
  Country: US (occurrence: US)
  Receive Date: 20171213
  Receipt Date: 20171213
  Transmission Date: 20180321
  Serious: Yes (Other)
  Sender: FDA-Public Use
  Company Number: US-UCBSA-2017043701

PATIENT
  Sex: Female

DRUGS (3)
  1. KEPPRA XR [Suspect]
     Active Substance: LEVETIRACETAM
     Indication: SEIZURE
     Dosage: UNK
  2. KEPPRA [Suspect]
     Active Substance: LEVETIRACETAM
     Indication: SEIZURE
     Dosage: UNK UNK, 2X/DAY (BID)
  3. LEVETIRACETAM. [Suspect]
     Active Substance: LEVETIRACETAM
     Indication: SEIZURE
     Dosage: UNK

REACTIONS (9)
  - Generalised tonic-clonic seizure [Unknown]
  - Nausea [Unknown]
  - Rash [Unknown]
  - Polymenorrhoea [Unknown]
  - Lethargy [Unknown]
  - Seizure [Unknown]
  - Dizziness [Unknown]
  - Diverticulitis [Unknown]
  - Headache [Unknown]

NARRATIVE: CASE EVENT DATE: 2014
